FAERS Safety Report 19598049 (Version 4)
Quarter: 2022Q1

REPORT INFORMATION
  Report Type: Spontaneous
  Country: US (occurrence: US)
  Receive Date: 20210722
  Receipt Date: 20220323
  Transmission Date: 20220423
  Serious: Yes (Other)
  Sender: FDA-Public Use
  Company Number: US-PFIZER INC-2021425790

PATIENT
  Age: 64 Year
  Sex: Female
  Weight: 85.275 kg

DRUGS (4)
  1. IBRANCE [Suspect]
     Active Substance: PALBOCICLIB
     Indication: Breast cancer female
     Dosage: 75 MG, ALTERNATE DAY (EVERY OTHER DAY FOR 3 WEEKS ON AND 1 OFF)
     Route: 048
  2. IBRANCE [Suspect]
     Active Substance: PALBOCICLIB
     Dosage: 75 MG, ALTERNATE DAY (FOR 21 DAYS ON)
     Route: 048
     Dates: start: 202012
  3. FASLODEX [Concomitant]
     Active Substance: FULVESTRANT
     Dosage: UNK
  4. LEVOTHYROXINE [Concomitant]
     Active Substance: LEVOTHYROXINE
     Dosage: UNK

REACTIONS (9)
  - White blood cell count decreased [Recovering/Resolving]
  - Off label use [Unknown]
  - Arthralgia [Unknown]
  - Hot flush [Unknown]
  - Herpes zoster [Unknown]
  - Insomnia [Not Recovered/Not Resolved]
  - Haemoglobin increased [Unknown]
  - Haematocrit increased [Unknown]
  - Anxiety [Unknown]
